FAERS Safety Report 11734161 (Version 1)
Quarter: 2015Q4

REPORT INFORMATION
  Report Type: Spontaneous
  Country: TW (occurrence: TW)
  Receive Date: 20151113
  Receipt Date: 20151113
  Transmission Date: 20160304
  Serious: Yes (Life-Threatening, Hospitalization)
  Sender: FDA-Public Use
  Company Number: TW-WATSON-2015-12736

PATIENT
  Age: 78 Year
  Sex: Female

DRUGS (2)
  1. AMLODIPINE [Concomitant]
     Active Substance: AMLODIPINE BESYLATE
     Indication: HYPERTENSION
     Dosage: UNK
     Route: 065
  2. ACETAZOLAMIDE (WATSON LABORATORIES) [Suspect]
     Active Substance: ACETAZOLAMIDE
     Indication: GLAUCOMA
     Dosage: 250 MG, SINGLE
     Route: 065

REACTIONS (4)
  - Ventricular fibrillation [Recovered/Resolved]
  - Respiratory failure [Recovered/Resolved]
  - Pulseless electrical activity [Recovered/Resolved]
  - Hypophosphataemia [Recovered/Resolved]
